FAERS Safety Report 8685192 (Version 2)
Quarter: 2013Q3

REPORT INFORMATION
  Report Type: Spontaneous
  Country: US (occurrence: US)
  Receive Date: 20120726
  Receipt Date: 20130903
  Transmission Date: 20140515
  Serious: No
  Sender: FDA-Public Use
  Company Number: US-ASTRAZENECA-2011SE48780

PATIENT
  Age: 49 Year
  Sex: Female
  Weight: 69.9 kg

DRUGS (7)
  1. SEROQUEL [Suspect]
     Indication: BIPOLAR DISORDER
     Route: 048
     Dates: start: 2007
  2. SEROQUEL [Suspect]
     Indication: ANXIETY
     Route: 048
     Dates: start: 2007
  3. SEROQUEL [Suspect]
     Indication: BIPOLAR DISORDER
     Route: 048
     Dates: end: 201307
  4. SEROQUEL [Suspect]
     Indication: ANXIETY
     Route: 048
     Dates: end: 201307
  5. KLONOPIN [Concomitant]
     Indication: PANIC ATTACK
  6. ZYLOPRIM [Concomitant]
  7. CITALOPRAM [Concomitant]
     Indication: BIPOLAR DISORDER

REACTIONS (4)
  - Depression [Unknown]
  - Pruritus [Unknown]
  - Drug withdrawal syndrome [Unknown]
  - Drug dose omission [Unknown]
